FAERS Safety Report 11399876 (Version 1)
Quarter: 2015Q3

REPORT INFORMATION
  Report Type: Spontaneous
  Country: FR (occurrence: FR)
  Receive Date: 20150820
  Receipt Date: 20150820
  Transmission Date: 20151125
  Serious: Yes (Hospitalization)
  Sender: FDA-Public Use
  Company Number: FR-FRESENIUS KABI-FK201503953

PATIENT
  Age: 47 Year
  Sex: Male

DRUGS (6)
  1. DEXAMETHASONE MERCK [Suspect]
     Active Substance: DEXAMETHASONE
     Indication: PRODUCT USED FOR UNKNOWN INDICATION
     Route: 042
     Dates: start: 20150311, end: 20150320
  2. CARBOPLATINE MYLAN [Suspect]
     Active Substance: CARBOPLATIN
     Indication: PRODUCT USED FOR UNKNOWN INDICATION
     Route: 042
     Dates: start: 20150319, end: 20150320
  3. CYTARABINE INJECTION [Suspect]
     Active Substance: CYTARABINE
     Indication: PRODUCT USED FOR UNKNOWN INDICATION
     Route: 042
     Dates: start: 20150319, end: 20150320
  4. CARBOPLATINE MYLAN [Suspect]
     Active Substance: CARBOPLATIN
     Route: 042
     Dates: start: 20150409
  5. CYTARABINE INJECTION [Suspect]
     Active Substance: CYTARABINE
     Route: 042
     Dates: start: 20150409
  6. DEXAMETHASONE MERCK [Suspect]
     Active Substance: DEXAMETHASONE
     Route: 042
     Dates: start: 20150409

REACTIONS (1)
  - Aplasia [Recovered/Resolved]

NARRATIVE: CASE EVENT DATE: 20150326
